FAERS Safety Report 15947918 (Version 3)
Quarter: 2019Q1

REPORT INFORMATION
  Report Type: Report from Study
  Country: US (occurrence: US)
  Receive Date: 20190211
  Receipt Date: 20190321
  Transmission Date: 20190417
  Serious: Yes (Hospitalization)
  Sender: FDA-Public Use
  Company Number: US-ACTELION-A-NJ2017-151221

PATIENT
  Age: 45 Year
  Sex: Female
  Weight: 58.96 kg

DRUGS (8)
  1. VELETRI [Suspect]
     Active Substance: EPOPROSTENOL
     Indication: PULMONARY ARTERIAL HYPERTENSION
     Dosage: 21 NG/KG, PER MIN
     Route: 042
  2. SILDENAFIL CITRATE. [Concomitant]
     Active Substance: SILDENAFIL CITRATE
  3. DIGOXIN. [Concomitant]
     Active Substance: DIGOXIN
  4. OPSUMIT [Suspect]
     Active Substance: MACITENTAN
     Dosage: 10 MG, QD
     Route: 048
     Dates: start: 20161030
  5. VELETRI [Suspect]
     Active Substance: EPOPROSTENOL
     Dosage: 21 NG/KG, PER MIN
     Route: 042
  6. COUMADIN [Concomitant]
     Active Substance: WARFARIN SODIUM
  7. OPSUMIT [Suspect]
     Active Substance: MACITENTAN
     Indication: PULMONARY ARTERIAL HYPERTENSION
     Dosage: UNK
     Route: 048
     Dates: start: 20140408
  8. PROPRANOLOL [Concomitant]
     Active Substance: PROPRANOLOL HYDROCHLORIDE

REACTIONS (15)
  - Catheter site pruritus [Unknown]
  - Orthopnoea [Unknown]
  - Hot flush [Recovered/Resolved]
  - Arrhythmia [Unknown]
  - Catheter site erythema [Unknown]
  - Device related infection [Unknown]
  - Catheter site pain [Unknown]
  - Dyspnoea exertional [Unknown]
  - Product administration error [Recovered/Resolved]
  - Atrioventricular block [Unknown]
  - Catheter site discharge [Unknown]
  - Headache [Recovered/Resolved]
  - Application site irritation [Unknown]
  - Hypersensitivity [Unknown]
  - Device malfunction [Recovered/Resolved]

NARRATIVE: CASE EVENT DATE: 201901
